FAERS Safety Report 4511057-1 (Version None)
Quarter: 2004Q4

REPORT INFORMATION
  Report Type: 
  Country: None (occurrence: None)
  Receive Date: 20041018
  Receipt Date: 20040819
  Transmission Date: 20050328
  Serious: No
  Sender: FDA-Public Use
  Company Number: 208549

PATIENT
  Age: 44 Year
  Sex: Female
  Weight: 120.2 kg

DRUGS (14)
  1. XOLAIR [Suspect]
     Indication: ASTHMA
     Dosage: 225 MG, Q2W, SUBUCTANEOUS
     Route: 058
     Dates: start: 20040224, end: 20040810
  2. NASONEX [Concomitant]
  3. CLONIDINE [Concomitant]
  4. FORADIL [Concomitant]
  5. SYNTHROID [Concomitant]
  6. VITAMIN E [Concomitant]
  7. ADALAT [Concomitant]
  8. MIAZIDE (ISONIAZID, ETHAMBUTOL HYDROCHLORIDE) [Concomitant]
  9. PREDNISONE [Concomitant]
  10. PULMICORT [Concomitant]
  11. PREVACID [Concomitant]
  12. SINGULAIR [Concomitant]
  13. POTASSIUM CHLORIDE [Concomitant]
  14. ALBUTEROL/SALINE (SODIUM CHLORIDE, ALBUTEROL, ALBUTEROL SULFATE) [Concomitant]

REACTIONS (1)
  - POLYMYOSITIS [None]
